FAERS Safety Report 7113852-1 (Version None)
Quarter: 2010Q4

REPORT INFORMATION
  Report Type: 
  Country: None (occurrence: None)
  Receive Date: 20101119
  Receipt Date: 20101108
  Transmission Date: 20110411
  Serious: Yes (Disabling)
  Sender: FDA-Public Use
  Company Number: JP-GENENTECH-309711

PATIENT
  Age: 85 Year
  Sex: Male

DRUGS (12)
  1. RANIBIZUMAB [Suspect]
     Indication: MACULAR DEGENERATION
     Dosage: 0.05 ML, UNK
     Route: 031
     Dates: start: 20090514
  2. RANIBIZUMAB [Suspect]
     Dosage: 0.05 ML, UNK
     Route: 031
     Dates: start: 20090101
  3. RANIBIZUMAB [Suspect]
     Dosage: 0.05 ML, UNK
     Route: 031
     Dates: start: 20091001
  4. RANIBIZUMAB [Suspect]
     Dosage: 0.05 ML, UNK
     Route: 031
     Dates: start: 20091014
  5. RANIBIZUMAB [Suspect]
     Dosage: 0.05 ML, UNK
     Route: 031
  6. RANIBIZUMAB [Suspect]
     Dosage: 0.05 ML, UNK
     Route: 031
  7. RANIBIZUMAB [Suspect]
     Dosage: 0.05 ML, UNK
     Route: 031
  8. RANIBIZUMAB [Suspect]
     Dosage: 0.05 ML, UNK
     Route: 031
  9. RANIBIZUMAB [Suspect]
     Dosage: 0.05 ML, UNK
     Route: 031
     Dates: start: 20101013
  10. VISUDYNE [Suspect]
     Indication: MACULAR DEGENERATION
     Dosage: 6 MG/M2, UNK
     Route: 042
     Dates: start: 20090202
  11. VISUDYNE [Suspect]
     Dosage: 6 MG/M2, UNK
     Route: 042
     Dates: start: 20091014
  12. VISUDYNE [Suspect]
     Dosage: 6 MG/M2, UNK
     Route: 042
     Dates: start: 20101013

REACTIONS (6)
  - HAEMATOMA [None]
  - INAPPROPRIATE SCHEDULE OF DRUG ADMINISTRATION [None]
  - RETINAL HAEMORRHAGE [None]
  - RETINAL ISCHAEMIA [None]
  - RETINAL OEDEMA [None]
  - VISUAL ACUITY REDUCED [None]
